FAERS Safety Report 14563362 (Version 1)
Quarter: 2018Q1

REPORT INFORMATION
  Report Type: Spontaneous
  Country: US (occurrence: US)
  Receive Date: 20180222
  Receipt Date: 20180222
  Transmission Date: 20180509
  Serious: Yes (Hospitalization, Other)
  Sender: FDA-Public Use
  Company Number: US-GLAXOSMITHKLINE-US2018028301

PATIENT
  Age: 52 Year
  Sex: Female

DRUGS (4)
  1. BENLYSTA [Suspect]
     Active Substance: BELIMUMAB
     Indication: SYSTEMIC LUPUS ERYTHEMATOSUS
     Dosage: UNK UNK, Z
     Route: 042
     Dates: start: 201606
  2. DULOXETINE. [Concomitant]
     Active Substance: DULOXETINE
  3. LIPITOR [Concomitant]
     Active Substance: ATORVASTATIN CALCIUM
  4. BENLYSTA [Suspect]
     Active Substance: BELIMUMAB
     Dosage: UNK, CYC
     Dates: start: 2016

REACTIONS (14)
  - Back pain [Unknown]
  - Rash [Unknown]
  - Chest pain [Unknown]
  - Arthralgia [Unknown]
  - Fatigue [Recovered/Resolved]
  - Systemic lupus erythematosus [Unknown]
  - Myalgia [Not Recovered/Not Resolved]
  - Joint swelling [Not Recovered/Not Resolved]
  - Alopecia [Not Recovered/Not Resolved]
  - Pleurisy [Unknown]
  - Pain [Recovering/Resolving]
  - Peripheral swelling [Unknown]
  - Nausea [Not Recovered/Not Resolved]
  - Inappropriate schedule of drug administration [Recovered/Resolved]

NARRATIVE: CASE EVENT DATE: 201606
